FAERS Safety Report 18676761 (Version 1)
Quarter: 2020Q4

REPORT INFORMATION
  Report Type: Spontaneous
  Country: GB (occurrence: GB)
  Receive Date: 20201229
  Receipt Date: 20201229
  Transmission Date: 20210114
  Serious: Yes (Hospitalization)
  Sender: FDA-Public Use
  Company Number: GB-MYLANLABS-2020M1104076

PATIENT
  Age: 88 Year
  Sex: Female

DRUGS (11)
  1. OMEPRAZOLE. [Concomitant]
     Active Substance: OMEPRAZOLE
     Dosage: 40 MILLIGRAM, QD
  2. FERROUS SULFATE. [Concomitant]
     Active Substance: FERROUS SULFATE
     Dosage: 200 MILLIGRAM
  3. SIMVASTATIN. [Concomitant]
     Active Substance: SIMVASTATIN
     Dosage: AT NIGHT
  4. METFORMIN [Concomitant]
     Active Substance: METFORMIN HYDROCHLORIDE
     Dosage: DISCONTINUED.
  5. BENDROFLUMETHIAZIDE [Concomitant]
     Active Substance: BENDROFLUMETHIAZIDE
     Dosage: EACH MORNING. DISCONTINUED.
  6. ACETYLSALICYLIC ACID [Suspect]
     Active Substance: ASPIRIN
     Indication: PRODUCT USED FOR UNKNOWN INDICATION
     Dosage: DRUG HELD
  7. BETAHISTINE [Concomitant]
     Active Substance: BETAHISTINE
     Dosage: DISCONTINUED.
  8. FOLIC ACID. [Concomitant]
     Active Substance: FOLIC ACID
     Dosage: 5 MILLIGRAM, QD
  9. SERTRALINE [Suspect]
     Active Substance: SERTRALINE HYDROCHLORIDE
     Indication: PRODUCT USED FOR UNKNOWN INDICATION
     Dosage: DISCONTINUED.
  10. DONEPEZIL. [Concomitant]
     Active Substance: DONEPEZIL
     Dosage: AT NIGHT
  11. RISPERIDONE. [Concomitant]
     Active Substance: RISPERIDONE
     Dosage: HALF TABLET IN MORNING, HALF TABLET AT NIGHT. DISCONTINUED.

REACTIONS (3)
  - Fall [Unknown]
  - Back pain [Unknown]
  - Upper gastrointestinal haemorrhage [Unknown]
